FAERS Safety Report 8836676 (Version 4)
Quarter: 2013Q1

REPORT INFORMATION
  Report Type: Spontaneous
  Country: AU (occurrence: None)
  Receive Date: 20121010
  Receipt Date: 20121206
  Transmission Date: 20140127
  Serious: Yes (Hospitalization)
  Sender: FDA-Public Use
  Company Number: ACO_32262_2012

PATIENT
  Age: 37 Year
  Sex: Male

DRUGS (9)
  1. FAMPRIDINE [Suspect]
     Indication: MULTIPLE SCLEROSIS
     Route: 048
     Dates: start: 20120706
  2. DITROPAN (OXYBUTYNIN HYDROCHLORIDE) [Concomitant]
  3. BACLOFEN (BACLOFEN) [Concomitant]
  4. GILENYA (FINGOLIMOD HYDROCHLORIDE) [Concomitant]
  5. CRANBERRY (CRANBERRY) [Concomitant]
  6. FISH OIL (FISH OIL) [Concomitant]
  7. CIPRAMIL (CITALOPRAM HYDROBROMIDE) [Concomitant]
  8. CALCIUM + VITAMIN D (CALCIUM, COLECALCIFEROL) [Concomitant]
  9. MULTIVITAMIN (ASCORBIC ACID, CALCIUM CARBONATE, CYANOCOBALAMIN, NICOTINAMIDE, PYRIDOXINE HYDROCHLORIDE, RIBOFLAVIN SODIUM PHOSPHATE, THIAMINE HYDROCHLORIDE) [Concomitant]

REACTIONS (4)
  - Wound [None]
  - Fall [None]
  - Laceration [None]
  - Arterial haemorrhage [None]
